FAERS Safety Report 5515995-2 (Version None)
Quarter: 2007Q4

REPORT INFORMATION
  Report Type: 
  Country: None (occurrence: None)
  Receive Date: 20071114
  Receipt Date: 20061109
  Transmission Date: 20080405
  Serious: No
  Sender: FDA-Public Use
  Company Number: A0626707A

PATIENT
  Age: 23 Year
  Sex: Female

DRUGS (1)
  1. COMMIT [Suspect]
     Dates: start: 20061102

REACTIONS (4)
  - COUGH [None]
  - MALAISE [None]
  - PHARMACEUTICAL PRODUCT COMPLAINT [None]
  - THROAT IRRITATION [None]
